FAERS Safety Report 11113667 (Version 1)
Quarter: 2015Q2

REPORT INFORMATION
  Report Type: Spontaneous
  Country: US (occurrence: US)
  Receive Date: 20150514
  Receipt Date: 20150514
  Transmission Date: 20150821
  Serious: No
  Sender: FDA-Public Use
  Company Number: US-LUNDBECK-DKLU1110901

PATIENT
  Sex: Male
  Weight: 80 kg

DRUGS (2)
  1. NUMEROUS OTHER MEDS [Concomitant]
     Indication: PRODUCT USED FOR UNKNOWN INDICATION
  2. NORTHERA [Suspect]
     Active Substance: DROXIDOPA
     Indication: DIZZINESS
     Route: 048
     Dates: start: 201503

REACTIONS (1)
  - Dizziness [Not Recovered/Not Resolved]
